FAERS Safety Report 13098345 (Version 2)
Quarter: 2017Q1

REPORT INFORMATION
  Report Type: Report from Study
  Country: DK (occurrence: DK)
  Receive Date: 20170109
  Receipt Date: 20170203
  Transmission Date: 20170428
  Serious: Yes (Life-Threatening)
  Sender: FDA-Public Use
  Company Number: DK-EISAI MEDICAL RESEARCH-EC-2017-023905

PATIENT
  Age: 76 Year
  Sex: Male
  Weight: 85 kg

DRUGS (12)
  1. FYCOMPA [Suspect]
     Active Substance: PERAMPANEL
     Route: 048
     Dates: start: 20161128, end: 20161227
  2. BENDROFUMETHIAZID, KALIUM CHLORID [Concomitant]
  3. METOPROLOL. [Concomitant]
     Active Substance: METOPROLOL
  4. ALFUZOSIN [Concomitant]
     Active Substance: ALFUZOSIN
  5. CARBAMAZEPIN [Concomitant]
     Active Substance: CARBAMAZEPINE
  6. AMLODIPIN [Concomitant]
     Active Substance: AMLODIPINE BESYLATE
  7. FYCOMPA [Suspect]
     Active Substance: PERAMPANEL
     Indication: EPILEPSY
     Route: 048
     Dates: start: 20161121, end: 20161127
  8. LEVETIRACETAM. [Concomitant]
     Active Substance: LEVETIRACETAM
  9. PARACETAMOL [Concomitant]
     Active Substance: ACETAMINOPHEN
  10. RESORCINOL [Concomitant]
     Active Substance: RESORCINOL
  11. HYDROXOCOBALAMIN [Concomitant]
     Active Substance: HYDROXOCOBALAMIN
  12. LOSARTAN. [Concomitant]
     Active Substance: LOSARTAN

REACTIONS (1)
  - Suicide attempt [Recovered/Resolved]

NARRATIVE: CASE EVENT DATE: 20161227
